FAERS Safety Report 19513987 (Version 2)
Quarter: 2023Q4

REPORT INFORMATION
  Report Type: Spontaneous
  Country: US (occurrence: US)
  Receive Date: 20210709
  Receipt Date: 20231027
  Transmission Date: 20240110
  Serious: No
  Sender: FDA-Public Use
  Company Number: US-AVEO ONCOLOGY-2021-AVEO-US003361

PATIENT

DRUGS (13)
  1. FOTIVDA [Suspect]
     Active Substance: TIVOZANIB HYDROCHLORIDE
     Indication: Renal cell carcinoma
     Dosage: 1.34 MG, DAILY
  2. HEPARIN [Concomitant]
     Active Substance: HEPARIN SODIUM
  3. BUMEX [Concomitant]
     Active Substance: BUMETANIDE
  4. NIFEDIPINE [Concomitant]
     Active Substance: NIFEDIPINE
  5. PERCOCET [Concomitant]
     Active Substance: ACETAMINOPHEN\OXYCODONE HYDROCHLORIDE
  6. PROTONIX [Concomitant]
     Active Substance: PANTOPRAZOLE SODIUM
  7. FENOFIBRATE [Concomitant]
     Active Substance: FENOFIBRATE
  8. CARVEDILOL [Concomitant]
     Active Substance: CARVEDILOL
  9. DOXAZOSIN [Concomitant]
     Active Substance: DOXAZOSIN MESYLATE
  10. VITAMIN D [Concomitant]
     Active Substance: VITAMIN D NOS
  11. CALCITRIOL [Concomitant]
     Active Substance: CALCITRIOL
  12. HYDRALAZINE [Concomitant]
     Active Substance: HYDRALAZINE HYDROCHLORIDE
  13. XGEVA [Concomitant]
     Active Substance: DENOSUMAB

REACTIONS (1)
  - Vision blurred [Not Recovered/Not Resolved]
